FAERS Safety Report 8906272 (Version 1)
Quarter: 2012Q4

REPORT INFORMATION
  Report Type: Spontaneous
  Country: US (occurrence: None)
  Receive Date: 20121112
  Receipt Date: 20121112
  Transmission Date: 20130627
  Serious: Yes (Life-Threatening, Hospitalization)
  Sender: FDA-Public Use
  Company Number: None

PATIENT
  Age: 61 Year
  Sex: Female
  Weight: 55.34 kg

DRUGS (6)
  1. DASATINIB [Suspect]
     Indication: ACUTE LYMPHOCYTIC LEUKAEMIA
     Route: 048
     Dates: start: 20120917, end: 20121020
  2. PREDNISONE [Concomitant]
  3. VALTREX [Concomitant]
  4. DIFLUCAN [Concomitant]
  5. BACTRIM [Concomitant]
  6. CALTRATEX [Concomitant]

REACTIONS (6)
  - Diarrhoea [None]
  - Body temperature increased [None]
  - Confusional state [None]
  - Lung infiltration [None]
  - Oxygen saturation decreased [None]
  - Cytomegalovirus test positive [None]
